FAERS Safety Report 9320335 (Version 1)
Quarter: 2013Q2

REPORT INFORMATION
  Report Type: Spontaneous
  Country: US (occurrence: US)
  Receive Date: 20130530
  Receipt Date: 20130530
  Transmission Date: 20140414
  Serious: Yes (Other)
  Sender: FDA-Public Use
  Company Number: US-ELI_LILLY_AND_COMPANY-US201301003874

PATIENT
  Sex: Female
  Weight: 68.03 kg

DRUGS (2)
  1. EVISTA [Suspect]
     Dosage: UNK
     Route: 048
     Dates: start: 1999, end: 20120203
  2. ARIMIDEX [Concomitant]

REACTIONS (1)
  - Invasive ductal breast carcinoma [Unknown]
